FAERS Safety Report 23836051 (Version 1)
Quarter: 2024Q2

REPORT INFORMATION
  Report Type: Spontaneous
  Country: CN (occurrence: CN)
  Receive Date: 20240509
  Receipt Date: 20240509
  Transmission Date: 20240715
  Serious: Yes (Life-Threatening)
  Sender: FDA-Public Use
  Company Number: CN-BAYER-2024A068618

PATIENT
  Age: 33 Year
  Sex: Male
  Weight: 62 kg

DRUGS (1)
  1. ULTRAVIST [Suspect]
     Active Substance: IOPROMIDE
     Indication: Computerised tomogram thorax
     Dosage: 70 ML, ONCE
     Route: 040
     Dates: start: 20240418, end: 20240418

REACTIONS (8)
  - Blood pressure decreased [Recovered/Resolved]
  - Eyelid oedema [Recovering/Resolving]
  - Oropharyngeal discomfort [Recovering/Resolving]
  - Rash macular [Recovering/Resolving]
  - Flushing [Recovering/Resolving]
  - Somnolence [Recovering/Resolving]
  - Heart rate decreased [None]
  - Respiratory rate increased [None]

NARRATIVE: CASE EVENT DATE: 20240418
